FAERS Safety Report 6444218-5 (Version None)
Quarter: 2009Q4

REPORT INFORMATION
  Report Type: 
  Country: None (occurrence: None)
  Receive Date: 20091118
  Receipt Date: 20091112
  Transmission Date: 20100525
  Serious: Yes (Other)
  Sender: FDA-Public Use
  Company Number: GR-ROCHE-661248

PATIENT
  Age: 71 Year
  Sex: Female
  Weight: 60 kg

DRUGS (5)
  1. BONIVA [Suspect]
     Indication: OSTEOPOROSIS
     Route: 048
     Dates: start: 20070501, end: 20091001
  2. APROVEL [Concomitant]
     Indication: HYPERTENSION
     Route: 048
     Dates: start: 19950101
  3. CENTRAX [Concomitant]
     Indication: ANXIETY
     Dosage: DRUG NAME REPORTED: CENTRAC? (PRAZEPAM).
     Route: 048
     Dates: start: 20020101
  4. ONE-ALPHA [Concomitant]
     Indication: OSTEOPOROSIS
     Route: 048
     Dates: start: 20070101
  5. CALCIORAL [Concomitant]
     Indication: OSTEOPOROSIS
     Route: 048
     Dates: start: 20070101

REACTIONS (1)
  - VAGINAL HAEMORRHAGE [None]
